FAERS Safety Report 5310817-7 (Version None)
Quarter: 2007Q2

REPORT INFORMATION
  Report Type: 
  Country: None (occurrence: None)
  Receive Date: 20070428
  Receipt Date: 20070421
  Transmission Date: 20071010
  Serious: Yes (Other)
  Sender: FDA-Public Use
  Company Number: US-PFIZER INC-2007000219

PATIENT
  Age: 83 Year
  Sex: Male
  Weight: 66.7 kg

DRUGS (3)
  1. EXUBERA [Suspect]
     Indication: DIABETES MELLITUS
     Dosage: DAILY DOSE:6MG
     Dates: start: 20061108, end: 20061217
  2. AMARYL [Concomitant]
  3. AVANDIA [Concomitant]

REACTIONS (4)
  - BLOOD GLUCOSE INCREASED [None]
  - DYSPNOEA [None]
  - PRODUCTIVE COUGH [None]
  - RETCHING [None]
